FAERS Safety Report 9589555 (Version 1)
Quarter: 2013Q4

REPORT INFORMATION
  Report Type: Spontaneous
  Country: US (occurrence: US)
  Receive Date: 20131003
  Receipt Date: 20131003
  Transmission Date: 20140711
  Serious: No
  Sender: FDA-Public Use
  Company Number: US-AMGEN-USASP2012070692

PATIENT
  Age: 52 Year
  Sex: Female
  Weight: 81.18 kg

DRUGS (14)
  1. ENBREL [Suspect]
     Indication: PSORIATIC ARTHROPATHY
     Dosage: 50 MG, QWK
     Route: 058
  2. OMEPRAZOL                          /00661201/ [Concomitant]
     Dosage: 10 MG, UNK
  3. BUPROFEN [Concomitant]
     Dosage: 200 MG, UNK
  4. METHOTREXATE [Concomitant]
     Dosage: 2.5 MG, UNK
  5. LORATADINE [Concomitant]
     Dosage: UNK
  6. HYDROCHLOROTH [Concomitant]
     Dosage: 25 MG, UNK
  7. METFORMIN [Concomitant]
     Dosage: 500 MG, UNK
  8. NAPROXEN [Concomitant]
     Dosage: 500 MG, UNK
  9. IRON [Concomitant]
     Dosage: 325 MG, UNK
  10. VAGIFEM [Concomitant]
     Dosage: 25 MUG, UNK
  11. GLIPIZIDE XL [Concomitant]
     Dosage: 2.5 MG, UNK
  12. HYDROCORT                          /00028602/ [Concomitant]
     Dosage: UNK
  13. CLOBETASOL [Concomitant]
     Dosage: 0.05 %, UNK
  14. CALCIUM + VITAMIN D [Concomitant]
     Dosage: UNK

REACTIONS (7)
  - Pyrexia [Unknown]
  - Pain [Unknown]
  - Vomiting [Unknown]
  - Oropharyngeal pain [Unknown]
  - Vaginal infection [Unknown]
  - Viral infection [Unknown]
  - Pharyngitis [Unknown]
